FAERS Safety Report 15749560 (Version 2)
Quarter: 2019Q3

REPORT INFORMATION
  Report Type: Report from Study
  Country: CA (occurrence: CA)
  Receive Date: 20181221
  Receipt Date: 20190821
  Transmission Date: 20191004
  Serious: Yes (Other)
  Sender: FDA-Public Use
  Company Number: CA-BRISTOL-MYERS SQUIBB COMPANY-BMS-2018-113052

PATIENT
  Age: 61 Year
  Sex: Female

DRUGS (1)
  1. ABATACEPT [Suspect]
     Active Substance: ABATACEPT
     Indication: RHEUMATOID ARTHRITIS
     Dosage: 750 MG, Q4WK
     Route: 042
     Dates: start: 20140605

REACTIONS (3)
  - Limb discomfort [Recovering/Resolving]
  - Arthropathy [Not Recovered/Not Resolved]
  - Poor venous access [Recovered/Resolved]

NARRATIVE: CASE EVENT DATE: 20181129
